FAERS Safety Report 5168222-2 (Version None)
Quarter: 2006Q4

REPORT INFORMATION
  Report Type: 
  Country: None (occurrence: None)
  Receive Date: 20061208
  Receipt Date: 20061206
  Transmission Date: 20070319
  Serious: Yes (Hospitalization)
  Sender: FDA-Public Use
  Company Number: US-GLAXOSMITHKLINE-A0630797A

PATIENT
  Sex: Female

DRUGS (4)
  1. LOTRONEX [Suspect]
     Indication: DRUG USE FOR UNKNOWN INDICATION
     Dosage: 1MG TWICE PER DAY
     Route: 048
     Dates: start: 20060101, end: 20060920
  2. EFFEXOR [Concomitant]
  3. FIBERCON [Concomitant]
  4. PREMARIN [Concomitant]

REACTIONS (1)
  - CONSTIPATION [None]
